FAERS Safety Report 7526574-X (Version None)
Quarter: 2011Q2

REPORT INFORMATION
  Report Type: 
  Country: None (occurrence: None)
  Receive Date: 20110606
  Receipt Date: 20110524
  Transmission Date: 20111010
  Serious: Yes (Other)
  Sender: FDA-Public Use
  Company Number: CA-JNJFOC-20110512000

PATIENT
  Sex: Male
  Weight: 101 kg

DRUGS (7)
  1. OXYCONTIN [Concomitant]
  2. MICRO-K [Concomitant]
  3. LORAZEPAM [Concomitant]
  4. PIOGLITAZONE [Concomitant]
  5. REMICADE [Suspect]
     Indication: COLITIS ULCERATIVE
     Route: 042
     Dates: start: 20100325
  6. FERROUS GLUCONATE [Concomitant]
  7. CITALOPRAM [Concomitant]

REACTIONS (3)
  - DYSPNOEA [None]
  - RENAL FAILURE [None]
  - OEDEMA PERIPHERAL [None]
